FAERS Safety Report 5259515-9 (Version None)
Quarter: 2007Q1

REPORT INFORMATION
  Report Type: 
  Country: None (occurrence: None)
  Receive Date: 20070306
  Receipt Date: 20061213
  Transmission Date: 20070707
  Serious: Yes (Other)
  Sender: FDA-Public Use
  Company Number: 2006RL000456

PATIENT
  Age: 72 Year
  Sex: Female

DRUGS (3)
  1. OMACOR [Suspect]
     Indication: BLOOD TRIGLYCERIDES INCREASED
     Dosage: 1 GM;QD;PO
     Route: 048
     Dates: start: 20061001, end: 20061213
  2. CORZIDE /00614801/ [Concomitant]
  3. ACIPHEX [Concomitant]

REACTIONS (2)
  - DIZZINESS [None]
  - ROAD TRAFFIC ACCIDENT [None]
